FAERS Safety Report 4737813-2 (Version None)
Quarter: 2005Q3

REPORT INFORMATION
  Report Type: 
  Country: None (occurrence: None)
  Receive Date: 20050802
  Receipt Date: 20050718
  Transmission Date: 20060218
  Serious: Yes (Other)
  Sender: FDA-Public Use
  Company Number: 050801-0000679

PATIENT
  Sex: Female

DRUGS (1)
  1. FRISIUM (CLOBAZAM) [Suspect]
     Indication: EPILEPSY

REACTIONS (6)
  - CONDITION AGGRAVATED [None]
  - CONVULSION [None]
  - DRUG INEFFECTIVE [None]
  - PHARMACEUTICAL PRODUCT COMPLAINT [None]
  - SELF-MEDICATION [None]
  - TREATMENT NONCOMPLIANCE [None]
